FAERS Safety Report 6208037-7 (Version None)
Quarter: 2009Q2

REPORT INFORMATION
  Report Type: 
  Country: None (occurrence: None)
  Receive Date: 20090529
  Receipt Date: 20090311
  Transmission Date: 20091009
  Serious: No
  Sender: FDA-Public Use
  Company Number: US-KINGPHARMUSA00001-K200900277

PATIENT
  Sex: Female
  Weight: 58.957 kg

DRUGS (7)
  1. FLECTOR [Suspect]
     Indication: BACK PAIN
     Dosage: 1 PATCH, BID
     Route: 061
     Dates: start: 20081101
  2. PROZAC                             /00724401/ [Concomitant]
     Dosage: UNK
     Route: 048
  3. CELEBREX [Concomitant]
     Dosage: UNK
     Route: 048
  4. XANAX [Concomitant]
     Dosage: UNK
     Route: 048
  5. TRAZODONE HCL [Concomitant]
     Dosage: UNK
     Route: 048
  6. VITAMIN A [Concomitant]
     Dosage: UNK
     Route: 048
  7. ATACAND [Concomitant]
     Indication: HYPERTENSION
     Dosage: UNK

REACTIONS (2)
  - BLOOD PRESSURE INCREASED [None]
  - VISION BLURRED [None]
